FAERS Safety Report 6757685-4 (Version None)
Quarter: 2010Q2

REPORT INFORMATION
  Report Type: 
  Country: None (occurrence: None)
  Receive Date: 20100602
  Receipt Date: 20100525
  Transmission Date: 20101027
  Serious: Yes (Death)
  Sender: FDA-Public Use
  Company Number: WAES 1005USA04366

PATIENT
  Age: 27 Year
  Sex: Female

DRUGS (1)
  1. CAP VORINOSTAT UNK [Suspect]
     Dosage: /PO
     Route: 048

REACTIONS (8)
  - ACUTE GRAFT VERSUS HOST DISEASE IN INTESTINE [None]
  - BACTERIAL TEST POSITIVE [None]
  - DISEASE PROGRESSION [None]
  - GASTRIC DISORDER [None]
  - GRAFT VERSUS HOST DISEASE [None]
  - OESOPHAGEAL DISORDER [None]
  - ORGANISING PNEUMONIA [None]
  - RESPIRATORY FAILURE [None]
